FAERS Safety Report 7091959-5 (Version None)
Quarter: 2010Q4

REPORT INFORMATION
  Report Type: 
  Country: None (occurrence: None)
  Receive Date: 20101101
  Receipt Date: 20101018
  Transmission Date: 20110411
  Serious: Yes (Hospitalization)
  Sender: FDA-Public Use
  Company Number: DE_TT_10_00002 / DE-NLSPPROD-NLSP000081

PATIENT
  Sex: Male

DRUGS (1)
  1. DEXRAZOXANE [Suspect]
     Indication: EXTRAVASATION
     Dosage: IV
     Route: 042
     Dates: start: 20100301

REACTIONS (3)
  - DRUG ADMINISTRATION ERROR [None]
  - DRUG INEFFECTIVE [None]
  - EXTRAVASATION [None]
